FAERS Safety Report 19735363 (Version 1)
Quarter: 2021Q3

REPORT INFORMATION
  Report Type: Spontaneous
  Country: US (occurrence: US)
  Receive Date: 20210824
  Receipt Date: 20210824
  Transmission Date: 20211014
  Serious: No
  Sender: FDA-Public Use
  Company Number: US-OREXO US, INC.-ORE202102-000007

PATIENT
  Sex: Female

DRUGS (3)
  1. ZUBSOLV [Suspect]
     Active Substance: BUPRENORPHINE HYDROCHLORIDE\NALOXONE HYDROCHLORIDE
     Dosage: HALF TABLET, 11.4 MG/2.9 MG TWICE A DAY
  2. ZUBSOLV [Suspect]
     Active Substance: BUPRENORPHINE HYDROCHLORIDE\NALOXONE HYDROCHLORIDE
     Indication: DRUG DEPENDENCE
     Dosage: 5.7 MG/2.9 MG TWICE A DAY, 2 TABLETS IN THE MORNING AND 2 TABLETS IN THE EVENING
  3. ZUBSOLV [Suspect]
     Active Substance: BUPRENORPHINE HYDROCHLORIDE\NALOXONE HYDROCHLORIDE
     Dosage: ONE TABLET, 11.4 MG TWICE A DAY FOR A FEW MONTHS

REACTIONS (1)
  - Wrong technique in product usage process [Unknown]
